FAERS Safety Report 22045985 (Version 1)
Quarter: 2023Q1

REPORT INFORMATION
  Report Type: Report from Study
  Country: CA (occurrence: CA)
  Receive Date: 20230228
  Receipt Date: 20230228
  Transmission Date: 20230418
  Serious: Yes (Other)
  Sender: FDA-Public Use
  Company Number: CA-TEVA-2023-CA-2860231

PATIENT
  Sex: Male

DRUGS (2)
  1. OCTREOTIDE [Suspect]
     Active Substance: OCTREOTIDE
     Indication: Acromegaly
     Route: 030
     Dates: start: 20220502
  2. Sando LAR [Concomitant]
     Indication: Product used for unknown indication
     Route: 065

REACTIONS (1)
  - Cataract [Unknown]
